FAERS Safety Report 6536655-5 (Version None)
Quarter: 2010Q1

REPORT INFORMATION
  Report Type: 
  Country: None (occurrence: None)
  Receive Date: 20100113
  Receipt Date: 20100105
  Transmission Date: 20100710
  Serious: Yes (Other)
  Sender: FDA-Public Use
  Company Number: PHHO2010CY00504

PATIENT
  Sex: Male

DRUGS (3)
  1. AFINITOR [Suspect]
     Indication: METASTATIC RENAL CELL CARCINOMA
     Dosage: 10 MG DAILY
     Route: 048
     Dates: start: 20090101
  2. AFINITOR [Suspect]
     Dosage: NO TREATMENT
  3. AFINITOR [Suspect]
     Dosage: 5 MG DAILY
     Route: 048

REACTIONS (3)
  - FALL [None]
  - FEBRILE NEUTROPENIA [None]
  - FEMUR FRACTURE [None]
